FAERS Safety Report 8779794 (Version 1)
Quarter: 2012Q4

REPORT INFORMATION
  Report Type: 
  Country: CO (occurrence: CO)
  Receive Date: 20120913
  Receipt Date: 20120913
  Transmission Date: 20130627
  Serious: Yes (Death, Hospitalization)
  Sender: FDA-Public Use
  Company Number: MX-UCBSA-065325

PATIENT
  Sex: Female

DRUGS (1)
  1. ROTIGOTINE [Suspect]
     Indication: PARKINSON^S DISEASE
     Route: 062
     Dates: start: 20120515, end: 20120520

REACTIONS (4)
  - Death [Fatal]
  - Hypotension [Unknown]
  - Haematemesis [Unknown]
  - Nausea [Unknown]
